FAERS Safety Report 15360865 (Version 1)
Quarter: 2018Q3

REPORT INFORMATION
  Report Type: Spontaneous
  Country: NL (occurrence: NL)
  Receive Date: 20180907
  Receipt Date: 20180907
  Transmission Date: 20181010
  Serious: Yes (Other)
  Sender: FDA-Public Use
  Company Number: NL-EMD SERONO-9041685

PATIENT
  Age: 32 Year
  Sex: Female

DRUGS (2)
  1. GONAL?F [Suspect]
     Active Substance: FOLLITROPIN
     Indication: IN VITRO FERTILISATION
  2. DECAPEPTYL (ACETATE) [Suspect]
     Active Substance: TRIPTORELIN ACETATE
     Indication: IN VITRO FERTILISATION

REACTIONS (4)
  - Ovarian hyperstimulation syndrome [Unknown]
  - Syncope [Recovering/Resolving]
  - Overdose [Unknown]
  - Treatment failure [Unknown]
